FAERS Safety Report 13896100 (Version 1)
Quarter: 2017Q3

REPORT INFORMATION
  Report Type: Spontaneous
  Country: US (occurrence: None)
  Receive Date: 20170816
  Receipt Date: 20170816
  Transmission Date: 20171127
  Serious: Yes (Hospitalization)
  Sender: FDA-Public Use
  Company Number: None

PATIENT
  Age: 86 Year
  Sex: Female
  Weight: 58.97 kg

DRUGS (8)
  1. PRESERVISION [Concomitant]
     Active Substance: MINERALS\VITAMINS
  2. CALCIUM WITH PHOSPHORUS [Concomitant]
  3. DILTIAZEM ER [Concomitant]
     Active Substance: DILTIAZEM
  4. XARELTO [Suspect]
     Active Substance: RIVAROXABAN
     Indication: ATRIAL FIBRILLATION
     Dosage: 1 TABLET ONCE AT SUPPORT .. BY MOUTH WITH FOOD
     Route: 048
     Dates: start: 201701, end: 20170716
  5. OMEPRAZOLE DR [Concomitant]
     Active Substance: OMEPRAZOLE
  6. LOSARTAN POTASSIUM. [Concomitant]
     Active Substance: LOSARTAN POTASSIUM
  7. FIBER WELL GUMMIES [Concomitant]
  8. CALCIUM WTH VIT D [Concomitant]

REACTIONS (7)
  - Haemoglobin decreased [None]
  - Faeces discoloured [None]
  - Gastritis [None]
  - Haemorrhage [None]
  - Gastric polyps [None]
  - Diverticulum intestinal [None]
  - Oesophageal stenosis [None]

NARRATIVE: CASE EVENT DATE: 20170717
